FAERS Safety Report 20854634 (Version 1)
Quarter: 2022Q2

REPORT INFORMATION
  Report Type: Spontaneous
  Country: US (occurrence: None)
  Receive Date: 20220519
  Receipt Date: 20220519
  Transmission Date: 20220721
  Serious: No
  Sender: FDA-Public Use
  Company Number: None

PATIENT
  Sex: Female

DRUGS (2)
  1. GAMMAGARD [Suspect]
     Active Substance: HUMAN IMMUNOGLOBULIN G
     Indication: Renal transplant
     Dosage: OTHER FREQUENCY : EVRY 2 WKS;?
     Route: 042
     Dates: start: 20220408
  2. GAMMAGARD LIQUID [Suspect]
     Active Substance: HUMAN IMMUNOGLOBULIN G
     Route: 042

REACTIONS (7)
  - Infusion related reaction [None]
  - Nausea [None]
  - Fatigue [None]
  - Blood pressure increased [None]
  - Pain [None]
  - Migraine [None]
  - Heart rate increased [None]
